FAERS Safety Report 20923961 (Version 1)
Quarter: 2022Q2

REPORT INFORMATION
  Report Type: Spontaneous
  Country: US (occurrence: None)
  Receive Date: 20220606
  Receipt Date: 20220606
  Transmission Date: 20220720
  Serious: Yes (Hospitalization)
  Sender: FDA-Public Use
  Company Number: None

PATIENT
  Age: 79 Year
  Sex: Female
  Weight: 66.7 kg

DRUGS (10)
  1. PAXLOVID [Suspect]
     Active Substance: NIRMATRELVIR\RITONAVIR
     Indication: COVID-19
     Dates: start: 20220531, end: 20220602
  2. Adderall XR 15 mg daily [Concomitant]
  3. celecoxib 200 mg daily [Concomitant]
  4. clonazepam 0.5 mg BID prn anxiety [Concomitant]
  5. bupropion XR 450 mg daily [Concomitant]
  6. trazodone 50 mg QHS [Concomitant]
  7. simvastatin 40 mg daily [Concomitant]
  8. estrogens, conjugated,-methyltestosterone1.25-2.5 MG daily [Concomitant]
  9. ASPIRIN [Concomitant]
     Active Substance: ASPIRIN
  10. pantoprazole 40 mg daily [Concomitant]

REACTIONS (5)
  - Gait disturbance [None]
  - Hypoaesthesia [None]
  - Hypoaesthesia [None]
  - Transient ischaemic attack [None]
  - Hypertension [None]

NARRATIVE: CASE EVENT DATE: 20220602
